FAERS Safety Report 6092002-7 (Version None)
Quarter: 2009Q1

REPORT INFORMATION
  Report Type: 
  Country: None (occurrence: None)
  Receive Date: 20090225
  Receipt Date: 20081211
  Transmission Date: 20090719
  Serious: No
  Sender: FDA-Public Use
  Company Number: A0760024A

PATIENT
  Age: 62 Year
  Sex: Female

DRUGS (2)
  1. VALTREX [Suspect]
     Route: 048
     Dates: start: 20081209
  2. CALCIUM [Concomitant]

REACTIONS (3)
  - FATIGUE [None]
  - NAUSEA [None]
  - SLEEP DISORDER [None]
